FAERS Safety Report 16640109 (Version 1)
Quarter: 2019Q3

REPORT INFORMATION
  Report Type: Report from Study
  Country: ES (occurrence: ES)
  Receive Date: 20190727
  Receipt Date: 20190727
  Transmission Date: 20191004
  Serious: Yes (Hospitalization)
  Sender: FDA-Public Use
  Company Number: ES-ELI_LILLY_AND_COMPANY-ES201907008151

PATIENT
  Sex: Male
  Weight: 59 kg

DRUGS (12)
  1. TERIPARATIDE [Suspect]
     Active Substance: TERIPARATIDE
     Dosage: 20 UG, DAILY
     Route: 058
     Dates: start: 201905, end: 201906
  2. SEEBRI [Concomitant]
     Active Substance: GLYCOPYRROLATE
     Indication: LUNG DISORDER
     Dosage: 1 DOSAGE FORM, EACH EVENING
  3. TERIPARATIDE [Suspect]
     Active Substance: TERIPARATIDE
     Dosage: 20 UG, QOD
     Route: 058
     Dates: start: 201904, end: 201905
  4. TERIPARATIDE [Suspect]
     Active Substance: TERIPARATIDE
     Indication: OSTEOPOROSIS
     Dosage: 20 UG, DAILY
     Route: 058
     Dates: start: 20181010, end: 201903
  5. RAMIPRIL. [Concomitant]
     Active Substance: RAMIPRIL
     Indication: CARDIAC DISORDER
     Dosage: 0.5 DOSAGE FORM, DAILY
  6. HEPARIN [Concomitant]
     Active Substance: HEPARIN SODIUM
     Indication: PRODUCT USED FOR UNKNOWN INDICATION
     Dosage: UNK, BID
     Dates: start: 201903, end: 20190710
  7. EPLERENONA [Concomitant]
     Active Substance: EPLERENONE
     Indication: PRODUCT USED FOR UNKNOWN INDICATION
     Dosage: 1 DOSAGE FORM, DAILY
  8. DOXAZOSINA DOXAZOSIN [Concomitant]
     Indication: PROSTATIC DISORDER
     Dosage: 1 DOSAGE FORM, DAILY
  9. SINTROM [Suspect]
     Active Substance: ACENOCOUMAROL
     Indication: PROSTHESIS USER
     Dosage: 1 DOSAGE FORM, DAILY
     Route: 065
     Dates: end: 201903
  10. SINTROM [Suspect]
     Active Substance: ACENOCOUMAROL
     Dosage: 1 DOSAGE FORM, DAILY
     Route: 065
     Dates: start: 20190715
  11. BISOPROLOL [Concomitant]
     Active Substance: BISOPROLOL
     Indication: CARDIAC DISORDER
     Dosage: 0.5 DOSAGE FORM, DAILY
  12. TORASEMIDA [Concomitant]
     Active Substance: TORSEMIDE
     Indication: PRODUCT USED FOR UNKNOWN INDICATION
     Dosage: 1 DOSAGE FORM, DAILY

REACTIONS (11)
  - Haematoma [Unknown]
  - Urinary tract infection [Recovered/Resolved]
  - Intra-abdominal haemorrhage [Unknown]
  - Decreased appetite [Unknown]
  - Anaemia [Unknown]
  - Inappropriate schedule of product administration [Unknown]
  - Testicular swelling [Recovered/Resolved]
  - Embolism [Unknown]
  - Weight decreased [Recovering/Resolving]
  - Intra-abdominal haematoma [Unknown]
  - Pneumonia [Unknown]

NARRATIVE: CASE EVENT DATE: 20190315
